APPROVED DRUG PRODUCT: LETROZOLE
Active Ingredient: LETROZOLE
Strength: 2.5MG
Dosage Form/Route: TABLET;ORAL
Application: A202048 | Product #001
Applicant: LANNETT CO INC
Approved: Oct 29, 2014 | RLD: No | RS: No | Type: DISCN